FAERS Safety Report 24755293 (Version 3)
Quarter: 2025Q1

REPORT INFORMATION
  Report Type: Spontaneous
  Country: US (occurrence: US)
  Receive Date: 20241219
  Receipt Date: 20250204
  Transmission Date: 20250409
  Serious: Yes (Death, Hospitalization)
  Sender: FERRING
  Company Number: US-FERRINGPH-2024FE07026

PATIENT

DRUGS (1)
  1. REBYOTA [Suspect]
     Active Substance: DONOR HUMAN STOOL
     Indication: Clostridium difficile infection
     Route: 065
     Dates: start: 20241011, end: 20241011

REACTIONS (2)
  - Gastroenteritis Escherichia coli [Fatal]
  - Sepsis [Unknown]

NARRATIVE: CASE EVENT DATE: 20241101
